FAERS Safety Report 5869211-2 (Version None)
Quarter: 2008Q3

REPORT INFORMATION
  Report Type: 
  Country: None (occurrence: None)
  Receive Date: 20080903
  Receipt Date: 20080829
  Transmission Date: 20090109
  Serious: Yes (Hospitalization, Other)
  Sender: FDA-Public Use
  Company Number: AU-GENENTECH-267120

PATIENT
  Sex: Male

DRUGS (2)
  1. RAPTIVA [Suspect]
     Indication: PSORIASIS
     Dosage: 0.93 ML, 1/WEEK
     Route: 058
     Dates: start: 20071107
  2. NORVASC [Concomitant]
     Indication: HYPERTENSION

REACTIONS (3)
  - ANEURYSM [None]
  - ANGINA PECTORIS [None]
  - DIZZINESS [None]
